FAERS Safety Report 5193816-8 (Version None)
Quarter: 2006Q4

REPORT INFORMATION
  Report Type: 
  Country: None (occurrence: None)
  Receive Date: 20061228
  Receipt Date: 20061220
  Transmission Date: 20070319
  Serious: Yes (Hospitalization)
  Sender: FDA-Public Use
  Company Number: US-AVENTIS-200620234US

PATIENT
  Sex: Male

DRUGS (6)
  1. APIDRA [Suspect]
     Indication: DIABETES MELLITUS INSULIN-DEPENDENT
     Dosage: DOSE: VIA INSULIN PUMP
     Dates: start: 20060406
  2. PLAVIX [Concomitant]
     Dosage: DOSE: UNK
  3. DETROL LA [Concomitant]
     Dosage: DOSE: UNK
  4. ALTACE [Concomitant]
     Dosage: DOSE: UNK
  5. CRESTOR [Concomitant]
     Dosage: DOSE: UNK
  6. HUMALOG [Concomitant]
     Dosage: DOSE: UNK

REACTIONS (2)
  - DIABETIC KETOACIDOSIS [None]
  - DRUG INEFFECTIVE [None]
